FAERS Safety Report 26138042 (Version 1)
Quarter: 2025Q4

REPORT INFORMATION
  Report Type: Spontaneous
  Country: US (occurrence: US)
  Receive Date: 20251210
  Receipt Date: 20251210
  Transmission Date: 20260117
  Serious: Yes (Other)
  Sender: SANOFI AVENTIS
  Company Number: US-EMA-DD-20201112-bhardwaj_r-115401

PATIENT
  Sex: Male

DRUGS (8)
  1. RIFAMPIN [Suspect]
     Active Substance: RIFAMPIN
     Indication: Product used for unknown indication
  2. JYNARQUE [Suspect]
     Active Substance: TOLVAPTAN
     Indication: Congenital cystic kidney disease
     Dosage: 90 MG, QD, UPON WAKING
     Route: 048
     Dates: start: 201904
  3. JYNARQUE [Suspect]
     Active Substance: TOLVAPTAN
     Dosage: 45 MG, UPON WAKING
     Route: 048
  4. JYNARQUE [Suspect]
     Active Substance: TOLVAPTAN
     Dosage: 30 MG, QD, 8 HOURS LATER
     Route: 048
  5. JYNARQUE [Suspect]
     Active Substance: TOLVAPTAN
     Dosage: 15 MG, 8 HOURS LATER
     Route: 048
  6. AMLODIPINE BESYLATE [Concomitant]
     Active Substance: AMLODIPINE BESYLATE
  7. DOXYCYCLINE [Concomitant]
     Active Substance: DOXYCYCLINE
  8. LISINOPRIL [Concomitant]
     Active Substance: LISINOPRIL

REACTIONS (10)
  - Cutaneous T-cell lymphoma [Unknown]
  - Dyspepsia [Not Recovered/Not Resolved]
  - Swelling [Not Recovered/Not Resolved]
  - Blood creatinine increased [Recovering/Resolving]
  - Thirst [Not Recovered/Not Resolved]
  - Blood parathyroid hormone decreased [Recovered/Resolved]
  - Blood uric acid increased [Unknown]
  - Polyuria [Not Recovered/Not Resolved]
  - Liver function test increased [Recovered/Resolved]
  - Blood calcium increased [Recovered/Resolved]

NARRATIVE: CASE EVENT DATE: 20190429
